FAERS Safety Report 4675698-3 (Version None)
Quarter: 2005Q2

REPORT INFORMATION
  Report Type: 
  Country: None (occurrence: None)
  Receive Date: 20050527
  Receipt Date: 20050201
  Transmission Date: 20051028
  Serious: No
  Sender: FDA-Public Use
  Company Number: US-BRISTOL-MYERS SQUIBB COMPANY-12846465

PATIENT
  Age: 56 Year
  Sex: Male
  Weight: 101 kg

DRUGS (5)
  1. ERBITUX [Suspect]
     Dosage: INITIAL 800 MG ON 24-JAN-2005/31-JAN-2005, 500 MG ADMINISTERED.
     Route: 042
     Dates: start: 20050131
  2. BENADRYL [Concomitant]
     Indication: PREMEDICATION
     Route: 042
     Dates: start: 20050131
  3. DECADRON [Concomitant]
     Indication: PREMEDICATION
     Route: 042
     Dates: start: 20050131
  4. ACTIVASE [Concomitant]
     Indication: PREMEDICATION
     Dosage: VIA PORT-A-CATH.
     Dates: start: 20050131
  5. CAMPTOSAR [Concomitant]
     Dosage: ADMINISTERED WITH LOADING DOSE OF CETUXIMAB ON 24-JAN-2005.
     Route: 042

REACTIONS (3)
  - DIARRHOEA [None]
  - DRY MOUTH [None]
  - NAUSEA [None]
